FAERS Safety Report 21424370 (Version 1)
Quarter: 2022Q4

REPORT INFORMATION
  Report Type: Spontaneous
  Country: JP (occurrence: JP)
  Receive Date: 20221007
  Receipt Date: 20221007
  Transmission Date: 20230113
  Serious: Yes (Other)
  Sender: FDA-Public Use
  Company Number: JP-MALLINCKRODT-T202205271

PATIENT
  Sex: Female
  Weight: 4 kg

DRUGS (1)
  1. NITRIC OXIDE [Suspect]
     Active Substance: NITRIC OXIDE
     Indication: Pulmonary hypertension
     Dosage: UNK (INHALATION)
     Route: 055

REACTIONS (6)
  - Pneumothorax [Recovering/Resolving]
  - Gastric volvulus [Recovering/Resolving]
  - Gastropexy [Unknown]
  - Volvulus [Recovered/Resolved]
  - Spleen disorder [Recovered/Resolved]
  - Gastrooesophageal reflux disease [Unknown]
